FAERS Safety Report 9917821 (Version 2)
Quarter: 2014Q1

REPORT INFORMATION
  Report Type: Report from Study
  Country: US (occurrence: US)
  Receive Date: 20140221
  Receipt Date: 20140228
  Transmission Date: 20141002
  Serious: No
  Sender: FDA-Public Use
  Company Number: US-GILEAD-2014-0094620

PATIENT
  Age: 56 Year
  Sex: Female

DRUGS (3)
  1. SOFOSBUVIR [Suspect]
     Indication: CHRONIC HEPATITIS C
     Dosage: 400 MG, UNK
     Route: 065
     Dates: end: 20140212
  2. RIBAVIRIN [Concomitant]
  3. PEGASYS [Concomitant]

REACTIONS (2)
  - Malaise [Unknown]
  - Medication error [Unknown]
